FAERS Safety Report 17797607 (Version 2)
Quarter: 2020Q2

REPORT INFORMATION
  Report Type: Spontaneous
  Country: HR (occurrence: HR)
  Receive Date: 20200518
  Receipt Date: 20200520
  Transmission Date: 20200714
  Serious: Yes (Other)
  Sender: FDA-Public Use
  Company Number: HR-MYLANLABS-2020M1048456

PATIENT
  Age: 82 Year
  Sex: Male

DRUGS (2)
  1. BRUFEN [Suspect]
     Active Substance: IBUPROFEN
     Indication: PAIN
     Dosage: BRUFEN: 3X1 AS NEEDED
     Route: 048
     Dates: start: 20200313, end: 20200420
  2. IRUMED [Concomitant]
     Indication: ESSENTIAL HYPERTENSION
     Dosage: 2X1
     Route: 048

REACTIONS (4)
  - Oral mucosal blistering [Not Recovered/Not Resolved]
  - Oral pain [Recovered/Resolved]
  - Oral discomfort [Not Recovered/Not Resolved]
  - Burn oral cavity [Recovered/Resolved]

NARRATIVE: CASE EVENT DATE: 20200313
